FAERS Safety Report 11415035 (Version 1)
Quarter: 2015Q3

REPORT INFORMATION
  Report Type: Spontaneous
  Country: US (occurrence: US)
  Receive Date: 20150825
  Receipt Date: 20150825
  Transmission Date: 20151125
  Serious: Yes (Hospitalization, Other)
  Sender: FDA-Public Use
  Company Number: PHEH2015US015944

PATIENT
  Sex: Female
  Weight: 71.1 kg

DRUGS (5)
  1. PALBOCICLIB [Concomitant]
     Active Substance: PALBOCICLIB
     Indication: PRODUCT USED FOR UNKNOWN INDICATION
     Dosage: UNK
     Route: 065
     Dates: start: 20150608
  2. FASLODEX [Concomitant]
     Active Substance: FULVESTRANT
     Indication: PRODUCT USED FOR UNKNOWN INDICATION
     Dosage: UNK
     Route: 065
     Dates: start: 20150608
  3. AFINITOR [Suspect]
     Active Substance: EVEROLIMUS
     Indication: BREAST CANCER
     Route: 065
  4. AROMASIN [Suspect]
     Active Substance: EXEMESTANE
     Indication: PRODUCT USED FOR UNKNOWN INDICATION
     Route: 065
  5. MARINOL [Suspect]
     Active Substance: DRONABINOL
     Indication: PRODUCT USED FOR UNKNOWN INDICATION
     Dosage: 2.5 MG, BID
     Route: 048

REACTIONS (17)
  - Tumour marker increased [Recovering/Resolving]
  - Unresponsive to stimuli [Unknown]
  - Cough [Recovered/Resolved]
  - Pain [Unknown]
  - Asthenia [Unknown]
  - Gait disturbance [Unknown]
  - Dizziness [Unknown]
  - Oedema peripheral [Recovered/Resolved]
  - Malignant neoplasm progression [Unknown]
  - Pneumonitis [Recovered/Resolved]
  - Anxiety [Unknown]
  - Lung infiltration [Unknown]
  - Eating disorder [Unknown]
  - Nausea [Unknown]
  - Malignant ascites [Recovering/Resolving]
  - Depression [Unknown]
  - Pneumonia [Unknown]
